FAERS Safety Report 15751412 (Version 2)
Quarter: 2019Q1

REPORT INFORMATION
  Report Type: Spontaneous
  Country: US (occurrence: US)
  Receive Date: 20181221
  Receipt Date: 20190305
  Transmission Date: 20190417
  Serious: No
  Sender: FDA-Public Use
  Company Number: US-GLAXOSMITHKLINE-US2018222024

PATIENT
  Sex: Female

DRUGS (2)
  1. BENLYSTA [Suspect]
     Active Substance: BELIMUMAB
     Indication: PRODUCT USED FOR UNKNOWN INDICATION
     Dosage: UNK
     Route: 058
  2. BENLYSTA [Concomitant]
     Active Substance: BELIMUMAB

REACTIONS (4)
  - Injection site reaction [Recovering/Resolving]
  - Skin irritation [Not Recovered/Not Resolved]
  - Injection site pain [Recovered/Resolved]
  - Rash [Recovered/Resolved]
